FAERS Safety Report 9578103 (Version 1)
Quarter: 2013Q4

REPORT INFORMATION
  Report Type: Spontaneous
  Country: US (occurrence: US)
  Receive Date: 20131001
  Receipt Date: 20131001
  Transmission Date: 20140711
  Serious: No
  Sender: FDA-Public Use
  Company Number: US-AMGEN-USASP2013011276

PATIENT
  Age: 54 Year
  Sex: Female
  Weight: 67.57 kg

DRUGS (7)
  1. ENBREL [Suspect]
     Indication: RHEUMATOID ARTHRITIS
     Dosage: 50 MG, QWK
     Route: 058
  2. METHOTREXATE [Concomitant]
     Dosage: 2.5 MG, UNK
  3. DEXALONE                           /00016001/ [Concomitant]
     Dosage: 30 MG, UNK
  4. MULTIVITAMINS, PLAIN [Concomitant]
     Dosage: UNK
  5. BLACK COHOSH                       /01456801/ [Concomitant]
     Dosage: 1000 MG, UNK
  6. FOLIC ACID [Concomitant]
     Dosage: UNK
  7. EVENING PRIMROSE OIL [Concomitant]
     Dosage: 500 MG, UNK

REACTIONS (2)
  - Pain in extremity [Unknown]
  - Facial pain [Unknown]
